FAERS Safety Report 9630753 (Version 1)
Quarter: 2013Q4

REPORT INFORMATION
  Report Type: Spontaneous
  Country: US (occurrence: None)
  Receive Date: 20131016
  Receipt Date: 20131016
  Transmission Date: 20140711
  Serious: No
  Sender: FDA-Public Use
  Company Number: None

PATIENT
  Age: 63 Year
  Sex: Male

DRUGS (2)
  1. TEMOZOLOMIDE [Suspect]
     Dosage: D1-5 OF 28 DAYS.
     Route: 048
     Dates: start: 20130910
  2. TEMOZOLOMIDE [Suspect]
     Dosage: D 1-5 OF 28 DAYS.
     Dates: start: 20130910

REACTIONS (3)
  - Dysarthria [None]
  - Poor quality sleep [None]
  - Neoplasm progression [None]
